FAERS Safety Report 4677979-6 (Version None)
Quarter: 2005Q2

REPORT INFORMATION
  Report Type: 
  Country: None (occurrence: None)
  Receive Date: 20050531
  Receipt Date: 20040826
  Transmission Date: 20051028
  Serious: Yes (Death, Other)
  Sender: FDA-Public Use
  Company Number: 2004AP04541

PATIENT
  Age: 21251 Day
  Sex: Male

DRUGS (5)
  1. IRESSA [Suspect]
     Indication: NON-SMALL CELL LUNG CANCER
     Route: 048
     Dates: start: 20021127
  2. MS CONTIN [Concomitant]
     Indication: PAIN
     Route: 048
     Dates: start: 20021211
  3. TAXOTERE [Concomitant]
     Dosage: ONE COURSE
     Dates: start: 20021112
  4. CISPLATIN [Concomitant]
     Dosage: ONE COURSE
     Dates: start: 20021112
  5. GEMZAR [Concomitant]
     Dosage: ONE COURSE
     Dates: start: 20021112

REACTIONS (2)
  - INTERSTITIAL LUNG DISEASE [None]
  - LIVER DISORDER [None]
